FAERS Safety Report 5441569-8 (Version None)
Quarter: 2007Q3

REPORT INFORMATION
  Report Type: 
  Country: None (occurrence: None)
  Receive Date: 20070830
  Receipt Date: 20070830
  Transmission Date: 20080115
  Serious: Yes (Hospitalization)
  Sender: FDA-Public Use
  Company Number: None

PATIENT
  Sex: Female
  Weight: 76.4311 kg

DRUGS (10)
  1. REVLIMID [Suspect]
     Indication: THYROID CANCER
     Dosage: 25MG DAILY ORAL
     Route: 048
     Dates: start: 20070626, end: 20070813
  2. SYNTHROID [Concomitant]
  3. PAXIL [Concomitant]
  4. LISINO-HCTZ [Concomitant]
  5. ATIVAN [Concomitant]
  6. FLONASE [Concomitant]
  7. ALBUTEROL [Concomitant]
  8. VICODIN [Concomitant]
  9. ASPIRIN [Concomitant]
  10. VITAMIN CAP [Concomitant]

REACTIONS (1)
  - COLITIS ISCHAEMIC [None]
